FAERS Safety Report 22383485 (Version 52)
Quarter: 2024Q4

REPORT INFORMATION
  Report Type: Report from Study
  Country: CO (occurrence: CO)
  Receive Date: 20230530
  Receipt Date: 20241219
  Transmission Date: 20250115
  Serious: No
  Sender: TAKEDA
  Company Number: CO-TAKEDA-2021TUS055460

PATIENT
  Age: 4 Year
  Sex: Male
  Weight: 15 kg

DRUGS (4)
  1. IDURSULFASE [Suspect]
     Active Substance: IDURSULFASE
     Indication: Mucopolysaccharidosis II
     Dosage: 6 MILLIGRAM, 1/WEEK
  2. IDURSULFASE [Suspect]
     Active Substance: IDURSULFASE
     Indication: Mucopolysaccharidosis
     Dosage: 11 MILLIGRAM, 1/WEEK
  3. IDURSULFASE [Suspect]
     Active Substance: IDURSULFASE
     Indication: Colitis ulcerative
     Dosage: 10 MILLIGRAM, 1/WEEK
  4. IDURSULFASE [Suspect]
     Active Substance: IDURSULFASE
     Dosage: 13 MILLIGRAM, 1/WEEK
     Dates: start: 20210515

REACTIONS (28)
  - Body height increased [Unknown]
  - Weight increased [Unknown]
  - Nasal congestion [Recovering/Resolving]
  - Influenza [Recovering/Resolving]
  - Poor venous access [Recovered/Resolved]
  - Oedema [Recovered/Resolved]
  - Pain in extremity [Recovered/Resolved]
  - Inflammation [Recovering/Resolving]
  - Rhinorrhoea [Recovering/Resolving]
  - Influenza like illness [Recovering/Resolving]
  - Ear pain [Recovering/Resolving]
  - Pain [Recovering/Resolving]
  - Malaise [Recovering/Resolving]
  - Feeling abnormal [Recovering/Resolving]
  - Insurance issue [Unknown]
  - Product use issue [Unknown]
  - Incorrect dose administered [Unknown]
  - Inappropriate schedule of product administration [Unknown]
  - Product dose omission issue [Unknown]
  - Treatment noncompliance [Unknown]
  - Product use in unapproved indication [Unknown]
  - Product availability issue [Unknown]
  - Cough [Recovering/Resolving]
  - Dizziness [Recovering/Resolving]
  - Headache [Recovered/Resolved]
  - Pyrexia [Recovered/Resolved]
  - Erythema [Recovered/Resolved]
  - Product prescribing error [Unknown]

NARRATIVE: CASE EVENT DATE: 20210827
